FAERS Safety Report 23886527 (Version 1)
Quarter: 2024Q2

REPORT INFORMATION
  Report Type: Spontaneous
  Country: HU (occurrence: HU)
  Receive Date: 20240522
  Receipt Date: 20240522
  Transmission Date: 20240716
  Serious: Yes (Other)
  Sender: FDA-Public Use
  Company Number: HU-SA-2024SA150814

PATIENT
  Sex: Female

DRUGS (3)
  1. VANDETANIB [Suspect]
     Active Substance: VANDETANIB
     Indication: Medullary thyroid cancer
     Dosage: 100 MG, TID
     Dates: start: 20150608, end: 20190216
  2. VANDETANIB [Suspect]
     Active Substance: VANDETANIB
     Dosage: 100 MG, QD
     Dates: start: 20150608, end: 20190216
  3. VANDETANIB [Suspect]
     Active Substance: VANDETANIB
     Dosage: 100 MG, BID
     Dates: start: 20150608, end: 20190216

REACTIONS (6)
  - Pericardial effusion [Unknown]
  - Electrocardiogram QT prolonged [Unknown]
  - Diarrhoea [Unknown]
  - Asthenia [Unknown]
  - Rash [Unknown]
  - Vomiting [Unknown]

NARRATIVE: CASE EVENT DATE: 20190101
